FAERS Safety Report 7651065-5 (Version None)
Quarter: 2011Q3

REPORT INFORMATION
  Report Type: 
  Country: None (occurrence: None)
  Receive Date: 20110802
  Receipt Date: 20110720
  Transmission Date: 20111222
  Serious: Yes (Other)
  Sender: FDA-Public Use
  Company Number: US-ASTRAZENECA-2007UW27336

PATIENT
  Age: 44 Year
  Sex: Female
  Weight: 83.5 kg

DRUGS (31)
  1. ABILIFY [Concomitant]
     Dates: start: 20070401
  2. NEURONTIN [Concomitant]
     Route: 048
     Dates: start: 20060926, end: 20070821
  3. ZOCOR [Concomitant]
     Indication: HYPERLIPIDAEMIA
     Route: 048
     Dates: start: 20071005
  4. LIPITOR [Concomitant]
     Dates: start: 20041123
  5. SOMA [Concomitant]
     Dates: start: 20041123
  6. SEROQUEL [Suspect]
     Dosage: VARIOUS DOSES INCLUDING BUT NOT LIMITED TO 25 MG, 100 MG, 200 MG, AND 300 MG
     Route: 048
     Dates: start: 20020701, end: 20060301
  7. ZYPREXA [Concomitant]
     Dosage: VARIOUS DOSES INCLUDING BUT NOT LIMITED TO 15 MG
     Dates: start: 20010601
  8. LEXAPRO [Concomitant]
     Dosage: VARIOUS DOSES INCLUDING BUT NOT LIMITED TO 20 MG
     Dates: start: 20030201
  9. PEPCID [Concomitant]
     Route: 048
     Dates: start: 20060925
  10. DEPAKOTE [Concomitant]
     Route: 048
     Dates: start: 20051224
  11. ULTRACET [Concomitant]
     Dosage: 1  OR 2 TABLET Q6H
     Dates: start: 20041123
  12. KLONOPIN [Concomitant]
     Route: 048
     Dates: start: 20060926
  13. SEROQUEL [Suspect]
     Indication: SLEEP DISORDER
     Dosage: 25 - 300 MG
     Route: 048
     Dates: start: 20020620
  14. AMBIEN [Concomitant]
     Route: 048
     Dates: start: 20060926
  15. METHOCARBAMOL [Concomitant]
     Route: 048
     Dates: start: 20060926
  16. LOPRESSOR [Concomitant]
     Route: 048
     Dates: start: 20060929
  17. ALBUTEROL SULFATE AUTOHALER [Concomitant]
     Indication: DYSPNOEA
     Dosage: 0.83 PERCENT OF 2.5 MG/1 ML
     Route: 055
     Dates: start: 20070814
  18. SOLIAN [Concomitant]
     Dates: start: 20060101
  19. ACTOS [Concomitant]
     Indication: DIABETES MELLITUS
     Route: 048
     Dates: start: 20060926
  20. EVISTA [Concomitant]
     Route: 048
     Dates: start: 20070921
  21. PRILOSEC [Concomitant]
     Route: 048
     Dates: start: 20020801
  22. GLUCOTROL [Concomitant]
     Dosage: 5-10 MG
     Route: 048
     Dates: start: 20060926
  23. HYDROCHLOROTHIAZIDE [Concomitant]
     Indication: HYPERTENSION
     Route: 048
     Dates: start: 20020824
  24. ZESTRIL [Concomitant]
     Indication: HYPERTENSION
     Route: 048
     Dates: start: 20060926
  25. PROTONIX [Concomitant]
     Indication: GASTROOESOPHAGEAL REFLUX DISEASE
     Route: 048
     Dates: start: 20060926
  26. GEODON [Concomitant]
     Route: 048
     Dates: start: 20050926
  27. LYRICA [Concomitant]
     Indication: NERVE INJURY
     Route: 048
     Dates: start: 20071110
  28. DETROL LA [Concomitant]
     Dates: start: 20041123
  29. BENADRYL [Concomitant]
     Indication: INSOMNIA
     Dosage: AT NIGHT
     Route: 048
     Dates: start: 20000917
  30. ATIVAN [Concomitant]
     Route: 048
     Dates: start: 20020801
  31. RISPERDAL [Concomitant]
     Route: 048
     Dates: start: 20061020

REACTIONS (9)
  - ROAD TRAFFIC ACCIDENT [None]
  - DIABETES MELLITUS INADEQUATE CONTROL [None]
  - HYPERLIPIDAEMIA [None]
  - DIABETIC FOOT [None]
  - DIABETIC NEUROPATHY [None]
  - BLOOD CHOLESTEROL INCREASED [None]
  - GLUCOSE TOLERANCE IMPAIRED [None]
  - OBESITY [None]
  - TYPE 2 DIABETES MELLITUS [None]
